FAERS Safety Report 6836333-9 (Version None)
Quarter: 2010Q3

REPORT INFORMATION
  Report Type: 
  Country: None (occurrence: None)
  Receive Date: 20100713
  Receipt Date: 20100706
  Transmission Date: 20110219
  Serious: Yes (Other)
  Sender: FDA-Public Use
  Company Number: CA-MERCK-1007USA00479

PATIENT
  Age: 54 Year
  Sex: Male

DRUGS (11)
  1. ISENTRESS [Suspect]
     Route: 048
  2. BUPROPION HYDROCHLORIDE [Suspect]
     Route: 065
  3. CLONAZEPAM [Suspect]
     Route: 065
  4. KALETRA [Suspect]
     Route: 065
  5. LAMIVUDINE [Suspect]
     Route: 065
  6. QUETIAPINE FUMARATE [Suspect]
     Route: 065
  7. REYATAZ [Suspect]
     Route: 065
  8. SERTRALINE HYDROCHLORIDE [Suspect]
     Route: 065
  9. SUSTIVA [Suspect]
     Route: 048
  10. VALPROIC ACID [Suspect]
     Route: 065
  11. ZOPICLONE [Suspect]
     Route: 065

REACTIONS (2)
  - DEPRESSION [None]
  - DRUG INTERACTION [None]
